FAERS Safety Report 5402080-3 (Version None)
Quarter: 2007Q3

REPORT INFORMATION
  Report Type: 
  Country: None (occurrence: None)
  Receive Date: 20070726
  Receipt Date: 20070717
  Transmission Date: 20080115
  Serious: Yes (Life-Threatening, Hospitalization)
  Sender: FDA-Public Use
  Company Number: WAES 0707USA03338

PATIENT
  Age: 67 Year
  Sex: Female
  Weight: 50.8029 kg

DRUGS (15)
  1. DECADRON [Suspect]
     Dosage: PO
     Route: 048
     Dates: start: 20070701
  2. VELCADE [Suspect]
     Indication: MULTIPLE MYELOMA
     Dosage: 1.3 MG/M[2]/DAILY/IV; 1.3 MG/M[2]/DAILY/IV;1.0MG/M[2]/DAILY/IV;0.7 MG/M[2]/DAILY/IV
     Route: 042
     Dates: start: 20070326, end: 20070405
  3. VELCADE [Suspect]
     Indication: MULTIPLE MYELOMA
     Dosage: 1.3 MG/M[2]/DAILY/IV; 1.3 MG/M[2]/DAILY/IV;1.0MG/M[2]/DAILY/IV;0.7 MG/M[2]/DAILY/IV
     Route: 042
     Dates: start: 20060416, end: 20070426
  4. VELCADE [Suspect]
     Indication: MULTIPLE MYELOMA
     Dosage: 1.3 MG/M[2]/DAILY/IV; 1.3 MG/M[2]/DAILY/IV;1.0MG/M[2]/DAILY/IV;0.7 MG/M[2]/DAILY/IV
     Route: 042
     Dates: start: 20070529, end: 20070608
  5. VELCADE [Suspect]
     Indication: MULTIPLE MYELOMA
     Dosage: 1.3 MG/M[2]/DAILY/IV; 1.3 MG/M[2]/DAILY/IV;1.0MG/M[2]/DAILY/IV;0.7 MG/M[2]/DAILY/IV
     Route: 042
     Dates: start: 20070618, end: 20070618
  6. CISPLATIN [Suspect]
     Indication: MULTIPLE MYELOMA
     Dates: start: 20070701, end: 20070710
  7. CYCLOPHOSPHAMIDE [Suspect]
     Indication: MULTIPLE MYELOMA
     Dates: start: 20070701, end: 20070710
  8. ETOPOSIDE [Suspect]
     Indication: MULTIPLE MYELOMA
     Dates: start: 20070701, end: 20070710
  9. BACTRIM DS [Concomitant]
  10. CYMBALTA [Concomitant]
  11. FAMVIR [Concomitant]
  12. TOPROL-XL [Concomitant]
  13. DOXORUBICIN HCL [Concomitant]
  14. POTASSIUM (UNSPECIFIED) [Concomitant]
  15. VORINOSTAT [Concomitant]

REACTIONS (4)
  - ANAEMIA [None]
  - DISEASE PROGRESSION [None]
  - SMALL INTESTINAL HAEMORRHAGE [None]
  - THROMBOCYTOPENIA [None]
